FAERS Safety Report 9234505 (Version 2)
Quarter: 2013Q2

REPORT INFORMATION
  Report Type: Spontaneous
  Country: CZ (occurrence: CZ)
  Receive Date: 20130416
  Receipt Date: 20130423
  Transmission Date: 20140414
  Serious: Yes (Hospitalization, Disabling)
  Sender: FDA-Public Use
  Company Number: CZ-GLAXOSMITHKLINE-B0841686A

PATIENT
  Age: 69 Year
  Sex: Male

DRUGS (14)
  1. VOTRIENT [Suspect]
     Indication: RENAL CANCER
     Route: 065
     Dates: start: 201111, end: 20120613
  2. MILURIT [Concomitant]
     Dosage: 100MG PER DAY
  3. SORTIS [Concomitant]
     Dosage: 20MG PER DAY
     Route: 048
  4. AMARYL [Concomitant]
     Indication: TYPE 2 DIABETES MELLITUS
     Dosage: 3MG PER DAY
     Route: 048
  5. GLUCOPHAGE [Concomitant]
     Dosage: 500MG PER DAY
     Route: 048
  6. ANOPYRIN [Concomitant]
     Dosage: 100MG PER DAY
     Route: 048
  7. BETAXA [Concomitant]
     Dosage: 10MG PER DAY
     Route: 048
  8. CITALEC [Concomitant]
     Dosage: 10MG PER DAY
     Route: 048
  9. HELICID [Concomitant]
     Dosage: 20MG PER DAY
     Route: 048
  10. IBALGIN [Concomitant]
     Dosage: 800MG AS REQUIRED
     Route: 048
  11. LACTULOSA [Concomitant]
     Dosage: 20ML PER DAY
     Route: 048
  12. BONDRONAT [Concomitant]
     Dosage: 50MG PER DAY
     Route: 048
  13. LUSOPRESS [Concomitant]
     Dosage: 20MG PER DAY
     Route: 048
  14. BURONIL [Concomitant]
     Dosage: 60MG PER DAY
     Route: 048

REACTIONS (11)
  - Ischaemic stroke [Recovered/Resolved]
  - Liver disorder [Unknown]
  - Extrapyramidal disorder [Unknown]
  - Dyskinesia [Unknown]
  - Restless legs syndrome [Unknown]
  - Confusional state [Unknown]
  - Restlessness [Unknown]
  - Amnesia [Unknown]
  - Affect lability [Unknown]
  - Pelvic pain [Unknown]
  - Arthralgia [Unknown]
